FAERS Safety Report 7362617-4 (Version None)
Quarter: 2011Q1

REPORT INFORMATION
  Report Type: 
  Country: None (occurrence: None)
  Receive Date: 20110320
  Receipt Date: 20100831
  Transmission Date: 20110831
  Serious: Yes (Other)
  Sender: FDA-Public Use
  Company Number: US-BAYER-201019607NA

PATIENT
  Sex: Female
  Weight: 68 kg

DRUGS (21)
  1. RITALIN [Concomitant]
  2. LITHIUM [Concomitant]
  3. KLONOPIN [Concomitant]
     Dosage: 0.5 MG, BID
  4. LEXAPRO [Concomitant]
  5. CLONIDINE [Concomitant]
  6. BIAXIN [Concomitant]
  7. OCELLA [Suspect]
     Indication: PRODUCT USED FOR UNKNOWN INDICATION
     Route: 048
     Dates: start: 20040101
  8. TRILEPTAL [Concomitant]
  9. NEURONTIN [Concomitant]
  10. ADDERALL XR 10 [Concomitant]
     Dosage: UNK
     Dates: start: 20060101
  11. RISPERDAL [Concomitant]
     Dosage: 1 MG, BID
  12. YASMIN [Suspect]
     Indication: PRODUCT USED FOR UNKNOWN INDICATION
  13. CONCERTA [Concomitant]
  14. ALBUTEROL INHALER [Concomitant]
  15. TRAZODONE [Concomitant]
  16. PROZAC [Concomitant]
  17. YAZ [Suspect]
     Indication: PRODUCT USED FOR UNKNOWN INDICATION
     Route: 048
     Dates: start: 20040101
  18. YASMIN [Suspect]
     Indication: PREMENSTRUAL SYNDROME
     Dosage: UNK
     Route: 048
     Dates: start: 20030101, end: 20090101
  19. VISTARIL [Concomitant]
  20. REMERON [Concomitant]
     Dosage: 75 MG, UNK
  21. CLARITIN [Concomitant]

REACTIONS (10)
  - MENTAL DISORDER [None]
  - DYSPNOEA [None]
  - DEEP VEIN THROMBOSIS [None]
  - CHOLECYSTITIS [None]
  - PAIN IN EXTREMITY [None]
  - GALLBLADDER DISORDER [None]
  - MYOCARDIAL INFARCTION [None]
  - CEREBROVASCULAR ACCIDENT [None]
  - BACK PAIN [None]
  - PULMONARY EMBOLISM [None]
